FAERS Safety Report 4550102-4 (Version None)
Quarter: 2005Q1

REPORT INFORMATION
  Report Type: 
  Country: None (occurrence: None)
  Receive Date: 20050110
  Receipt Date: 20041228
  Transmission Date: 20050727
  Serious: Yes (Other)
  Sender: FDA-Public Use
  Company Number: 2004119809

PATIENT
  Sex: Female

DRUGS (1)
  1. CELEBREX [Suspect]
     Indication: PAIN
     Dosage: 200 MG

REACTIONS (4)
  - ARTERIAL RUPTURE [None]
  - BLINDNESS [None]
  - BLOOD PRESSURE INCREASED [None]
  - HEADACHE [None]
